FAERS Safety Report 21054702 (Version 8)
Quarter: 2022Q3

REPORT INFORMATION
  Report Type: Spontaneous
  Country: US (occurrence: US)
  Receive Date: 20220707
  Receipt Date: 20220923
  Transmission Date: 20221026
  Serious: Yes (Hospitalization, Other)
  Sender: FDA-Public Use
  Company Number: US-PFIZER INC-202101224325

PATIENT
  Age: 72 Year
  Sex: Female

DRUGS (2)
  1. IBRANCE [Suspect]
     Active Substance: PALBOCICLIB
     Indication: Breast cancer metastatic
     Dosage: 100 MG, DAILY
     Dates: start: 202106
  2. IBRANCE [Suspect]
     Active Substance: PALBOCICLIB
     Dosage: UNK
     Dates: start: 202103

REACTIONS (19)
  - Diabetes mellitus [Unknown]
  - Blood sodium decreased [Unknown]
  - Inappropriate schedule of product administration [Unknown]
  - Therapeutic response unexpected [Unknown]
  - White blood cell count decreased [Unknown]
  - Dizziness [Unknown]
  - Dizziness [Unknown]
  - Abdominal pain upper [Unknown]
  - Flatulence [Unknown]
  - Balance disorder [Unknown]
  - Malaise [Unknown]
  - Cystitis [Unknown]
  - Alopecia [Unknown]
  - Decreased appetite [Unknown]
  - Neoplasm progression [Unknown]
  - Red blood cell count decreased [Unknown]
  - Fatigue [Unknown]
  - Nausea [Unknown]
  - Diarrhoea [Unknown]

NARRATIVE: CASE EVENT DATE: 20210101
